FAERS Safety Report 9440893 (Version 1)
Quarter: 2013Q3

REPORT INFORMATION
  Report Type: Spontaneous
  Country: US (occurrence: None)
  Receive Date: 20130801
  Receipt Date: 20130801
  Transmission Date: 20140515
  Serious: Yes (Hospitalization)
  Sender: FDA-Public Use
  Company Number: VAL_02664_2013

PATIENT
  Age: 61 Year
  Sex: Female

DRUGS (3)
  1. EXELON [Suspect]
     Indication: DEMENTIA ALZHEIMER^S TYPE
     Route: 062
     Dates: start: 20130615, end: 20130720
  2. ARMOUR THYROID [Suspect]
     Indication: PRODUCT USED FOR UNKNOWN INDICATION
  3. METOPROLOL [Suspect]
     Indication: PRODUCT USED FOR UNKNOWN INDICATION

REACTIONS (4)
  - Malaise [None]
  - Blood sodium decreased [None]
  - Hypertension [None]
  - Blood electrolytes decreased [None]
